FAERS Safety Report 8353270-1 (Version None)
Quarter: 2012Q2

REPORT INFORMATION
  Report Type: 
  Country: None (occurrence: None)
  Receive Date: 20120511
  Receipt Date: 20120503
  Transmission Date: 20120825
  Serious: Yes (Hospitalization)
  Sender: FDA-Public Use
  Company Number: US-VALEANT-2012VX002089

PATIENT

DRUGS (2)
  1. FLUOROURACIL [Suspect]
     Route: 042
  2. SALINE [Concomitant]
     Route: 065

REACTIONS (6)
  - ACCIDENTAL OVERDOSE [None]
  - DIZZINESS [None]
  - CHEST PAIN [None]
  - MENTAL STATUS CHANGES [None]
  - SWELLING [None]
  - INCORRECT DRUG ADMINISTRATION RATE [None]
